FAERS Safety Report 7954377-0 (Version None)
Quarter: 2011Q4

REPORT INFORMATION
  Report Type: 
  Country: None (occurrence: None)
  Receive Date: 20111202
  Receipt Date: 20111129
  Transmission Date: 20120403
  Serious: Yes (Other)
  Sender: FDA-Public Use
  Company Number: IT-PFIZER INC-2011290701

PATIENT
  Age: 17 Month
  Sex: Male

DRUGS (1)
  1. REFACTO [Suspect]
     Dosage: UNK

REACTIONS (1)
  - ANTI FACTOR VIII ANTIBODY POSITIVE [None]
